FAERS Safety Report 13689402 (Version 1)
Quarter: 2017Q2

REPORT INFORMATION
  Report Type: Spontaneous
  Country: US (occurrence: US)
  Receive Date: 20170625
  Receipt Date: 20170625
  Transmission Date: 20170830
  Serious: Yes (Other)
  Sender: FDA-Public Use
  Company Number: None

PATIENT
  Age: 34 Year
  Sex: Female
  Weight: 42.75 kg

DRUGS (5)
  1. LORAZEPAM 0.5MG [Suspect]
     Active Substance: LORAZEPAM
     Indication: INSOMNIA
     Dosage: ?          OTHER STRENGTH:MG;QUANTITY:1 TABLET(S);?
     Route: 048
     Dates: start: 20170501, end: 20170525
  2. MAGNESIUM SUPPLEMENT [Concomitant]
  3. LORAZEPAM 0.5MG [Suspect]
     Active Substance: LORAZEPAM
     Indication: ANXIETY
     Dosage: ?          OTHER STRENGTH:MG;QUANTITY:1 TABLET(S);?
     Route: 048
     Dates: start: 20170501, end: 20170525
  4. THEANINE [Concomitant]
     Active Substance: THEANINE
  5. LORAZEPAM 0.5MG [Suspect]
     Active Substance: LORAZEPAM
     Indication: PANIC ATTACK
     Dosage: ?          OTHER STRENGTH:MG;QUANTITY:1 TABLET(S);?
     Route: 048
     Dates: start: 20170501, end: 20170525

REACTIONS (15)
  - Chills [None]
  - Malaise [None]
  - Feeling abnormal [None]
  - Depression [None]
  - Insomnia [None]
  - Chest pain [None]
  - Hyperhidrosis [None]
  - Withdrawal syndrome [None]
  - Nausea [None]
  - Intrusive thoughts [None]
  - Suicidal ideation [None]
  - Asthenia [None]
  - Food aversion [None]
  - Anxiety [None]
  - Pain [None]

NARRATIVE: CASE EVENT DATE: 20170524
